FAERS Safety Report 6479025-0 (Version None)
Quarter: 2009Q4

REPORT INFORMATION
  Report Type: 
  Country: None (occurrence: None)
  Receive Date: 20091207
  Receipt Date: 20090715
  Transmission Date: 20100525
  Serious: No
  Sender: FDA-Public Use
  Company Number: US-AMGEN-KDL333153

PATIENT
  Sex: Male
  Weight: 99.9 kg

DRUGS (8)
  1. ENBREL [Suspect]
     Indication: PSORIATIC ARTHROPATHY
     Route: 058
     Dates: start: 20081016, end: 20090210
  2. AVALIDE [Concomitant]
  3. EFFEXOR [Concomitant]
  4. VICODIN [Concomitant]
  5. PERCOCET [Concomitant]
  6. RESTORIL [Concomitant]
  7. CALCIPOTRIENE [Concomitant]
  8. BETAMETHASONE [Concomitant]

REACTIONS (5)
  - ANXIETY [None]
  - FATIGUE [None]
  - FEELING ABNORMAL [None]
  - HYPERTENSION [None]
  - TENSION [None]
